FAERS Safety Report 9061388 (Version 1)
Quarter: 2013Q1

REPORT INFORMATION
  Report Type: Spontaneous
  Country: US (occurrence: None)
  Receive Date: 20130208
  Receipt Date: 20130208
  Transmission Date: 20140127
  Serious: Yes (Other)
  Sender: FDA-Public Use
  Company Number: None

PATIENT
  Sex: Male

DRUGS (1)
  1. XTANDI 40MG ASTELLAS [Suspect]
     Route: 048

REACTIONS (3)
  - Fatigue [None]
  - Nausea [None]
  - Vomiting [None]
